FAERS Safety Report 21740895 (Version 4)
Quarter: 2023Q1

REPORT INFORMATION
  Report Type: Report from Study
  Country: IT (occurrence: IT)
  Receive Date: 20221216
  Receipt Date: 20230127
  Transmission Date: 20230417
  Serious: Yes (Hospitalization, Other)
  Sender: FDA-Public Use
  Company Number: IT-TAKEDA-2022TUS095648

PATIENT
  Age: 70 Year
  Sex: Male

DRUGS (35)
  1. MOBOCERTINIB [Suspect]
     Active Substance: MOBOCERTINIB
     Indication: Non-small cell lung cancer
     Dosage: 160 MILLIGRAM
     Route: 048
     Dates: start: 20221028
  2. MOBOCERTINIB [Suspect]
     Active Substance: MOBOCERTINIB
     Dosage: 120 MILLIGRAM
     Route: 048
     Dates: start: 20221118
  3. LOPERAMIDE [Suspect]
     Active Substance: LOPERAMIDE
     Indication: Non-small cell lung cancer
     Dosage: UNK
     Route: 065
  4. OMEPRAZOLE [Concomitant]
     Active Substance: OMEPRAZOLE
     Indication: Prophylaxis
     Dosage: 20 MILLIGRAM, QD
     Route: 048
     Dates: start: 2017
  5. BISOPROLOL FUMARATE [Concomitant]
     Active Substance: BISOPROLOL FUMARATE
     Indication: Hypertension
     Dosage: 2.5 MILLIGRAM, QD
     Route: 048
     Dates: start: 2017
  6. BISOPROLOL FUMARATE [Concomitant]
     Active Substance: BISOPROLOL FUMARATE
     Indication: Prophylaxis
  7. METFORMIN HYDROCHLORIDE [Concomitant]
     Active Substance: METFORMIN HYDROCHLORIDE
     Indication: Type 2 diabetes mellitus
     Dosage: 500 MILLIGRAM, QD
     Route: 048
     Dates: start: 2015
  8. METFORMIN HYDROCHLORIDE [Concomitant]
     Active Substance: METFORMIN HYDROCHLORIDE
     Indication: Prophylaxis
  9. ENALAPRIL MALEATE\LERCANIDIPINE HYDROCHLORIDE [Concomitant]
     Active Substance: ENALAPRIL MALEATE\LERCANIDIPINE HYDROCHLORIDE
     Indication: Hypertension
     Dosage: 20 MILLIGRAM, QD
     Route: 048
     Dates: start: 2017
  10. ENALAPRIL MALEATE\LERCANIDIPINE HYDROCHLORIDE [Concomitant]
     Active Substance: ENALAPRIL MALEATE\LERCANIDIPINE HYDROCHLORIDE
     Indication: Prophylaxis
  11. ASPIRIN [Concomitant]
     Active Substance: ASPIRIN
     Indication: Hypertension
     Dosage: 100 MILLIGRAM, QD
     Route: 048
     Dates: start: 2017
  12. ASPIRIN [Concomitant]
     Active Substance: ASPIRIN
     Indication: Prophylaxis
  13. ATORVASTATIN [Concomitant]
     Active Substance: ATORVASTATIN
     Indication: Dyslipidaemia
     Dosage: 20 MILLIGRAM, QD
     Route: 048
     Dates: start: 2017
  14. ATORVASTATIN [Concomitant]
     Active Substance: ATORVASTATIN
     Indication: Prophylaxis
  15. PREDNISONE [Concomitant]
     Active Substance: PREDNISONE
     Indication: Neoplasm malignant
     Dosage: 25 MILLIGRAM, QD
     Route: 048
     Dates: start: 202209, end: 20221111
  16. PREDNISONE [Concomitant]
     Active Substance: PREDNISONE
     Indication: Prophylaxis
     Dosage: 12.5 MILLIGRAM, QD
     Route: 048
     Dates: start: 20221111
  17. MYCOSTATIN [Concomitant]
     Active Substance: NYSTATIN
     Indication: Mucosal inflammation
     Dosage: UNK UNK, TID
     Route: 050
     Dates: start: 20221111
  18. MAGNESIUM [Concomitant]
     Active Substance: MAGNESIUM
     Indication: Blood magnesium decreased
     Dosage: 2.25 GRAM, TID
     Route: 048
     Dates: start: 20221111
  19. MAGNESIUM [Concomitant]
     Active Substance: MAGNESIUM
     Indication: Prophylaxis
  20. DEXAMETHASONE [Concomitant]
     Active Substance: DEXAMETHASONE
     Indication: Diarrhoea
     Dosage: 4 MILLIGRAM, QD
     Route: 042
     Dates: start: 20221111, end: 20221111
  21. DEXAMETHASONE [Concomitant]
     Active Substance: DEXAMETHASONE
     Indication: Decreased appetite
  22. DEXAMETHASONE [Concomitant]
     Active Substance: DEXAMETHASONE
     Indication: Asthenia
  23. GRANISETRON [Concomitant]
     Active Substance: GRANISETRON
     Indication: Diarrhoea
     Dosage: 4 MILLIGRAM, QD
     Route: 042
     Dates: start: 20221111, end: 20221111
  24. GRANISETRON [Concomitant]
     Active Substance: GRANISETRON
     Indication: Decreased appetite
  25. ESOMEPRAZOLE [Concomitant]
     Active Substance: ESOMEPRAZOLE
     Indication: Diarrhoea
     Dosage: 40 MILLIGRAM, QD
     Route: 042
     Dates: start: 20221111, end: 20221111
  26. ESOMEPRAZOLE [Concomitant]
     Active Substance: ESOMEPRAZOLE
     Indication: Decreased appetite
  27. ESOMEPRAZOLE [Concomitant]
     Active Substance: ESOMEPRAZOLE
     Indication: Asthenia
  28. UNSPECIFIED INGREDIENT [Concomitant]
     Active Substance: UNSPECIFIED INGREDIENT
     Indication: Diarrhoea
     Dosage: 500 MILLILITER, QD
     Route: 042
     Dates: start: 20221111, end: 20221111
  29. UNSPECIFIED INGREDIENT [Concomitant]
     Active Substance: UNSPECIFIED INGREDIENT
     Indication: Decreased appetite
  30. UNSPECIFIED INGREDIENT [Concomitant]
     Active Substance: UNSPECIFIED INGREDIENT
     Indication: Asthenia
  31. LOPERAMIDE [Concomitant]
     Active Substance: LOPERAMIDE
     Indication: Diarrhoea
     Dosage: 2 MILLIGRAM, QD
     Route: 048
     Dates: start: 20221111
  32. Dobetin [Concomitant]
     Indication: Prophylaxis
     Dosage: 1000 MICROGRAM
     Route: 030
     Dates: start: 20221014
  33. FOLIC ACID [Concomitant]
     Active Substance: FOLIC ACID
     Indication: Prophylaxis
     Dosage: 400 MICROGRAM, QD
     Route: 048
     Dates: start: 20221014
  34. DOXYCYCLINE [Concomitant]
     Active Substance: DOXYCYCLINE
     Indication: Diarrhoea
     Dosage: 40 MILLIGRAM, BID
     Route: 048
     Dates: start: 20221125, end: 20221130
  35. TRAMADOL HYDROCHLORIDE [Concomitant]
     Active Substance: TRAMADOL HYDROCHLORIDE
     Indication: Diarrhoea
     Dosage: UNK UNK, TID
     Route: 048
     Dates: start: 20221125, end: 20221130

REACTIONS (1)
  - Dehydration [Recovered/Resolved]

NARRATIVE: CASE EVENT DATE: 20221209
